FAERS Safety Report 18180171 (Version 1)
Quarter: 2020Q3

REPORT INFORMATION
  Report Type: Report from Study
  Country: US (occurrence: US)
  Receive Date: 20200821
  Receipt Date: 20200821
  Transmission Date: 20201103
  Serious: Yes (Hospitalization)
  Sender: FDA-Public Use
  Company Number: US-GILEAD-2020-0490766

PATIENT
  Age: 82 Year
  Sex: Female

DRUGS (8)
  1. ELIQUIS [Concomitant]
     Active Substance: APIXABAN
  2. VITAMIN D NOS [Concomitant]
     Active Substance: VITAMIN D NOS
  3. LEVOTHYROXINE SODIUM. [Concomitant]
     Active Substance: LEVOTHYROXINE SODIUM
  4. AZTREONAM LYSINE [Suspect]
     Active Substance: AZTREONAM LYSINE
     Indication: CYSTIC FIBROSIS
     Dosage: 75 MG, TID FOR 28 DAYS ON AND 28 DAYS OFF
     Route: 055
  5. XOPENEX [Concomitant]
     Active Substance: LEVALBUTEROL HYDROCHLORIDE
  6. FLONASE [Concomitant]
     Active Substance: FLUTICASONE PROPIONATE
  7. METOPROLOL SUCCINATE. [Concomitant]
     Active Substance: METOPROLOL SUCCINATE
  8. ADVAIR HFA [Concomitant]
     Active Substance: FLUTICASONE PROPIONATE\SALMETEROL XINAFOATE

REACTIONS (1)
  - Cardiac disorder [Unknown]
